FAERS Safety Report 10092504 (Version 1)
Quarter: 2014Q2

REPORT INFORMATION
  Report Type: Spontaneous
  Country: US (occurrence: US)
  Receive Date: 20140421
  Receipt Date: 20140421
  Transmission Date: 20141212
  Serious: No
  Sender: FDA-Public Use
  Company Number: US-SANOFI-AVENTIS-2013SA050969

PATIENT
  Sex: Female

DRUGS (5)
  1. ALLEGRA 24 HOUR [Suspect]
  2. NORVASC [Concomitant]
  3. LOSARTAN [Concomitant]
  4. ALL OTHER THERAPEUTIC PRODUCTS [Concomitant]
  5. CLARITIN [Concomitant]

REACTIONS (2)
  - Insomnia [Unknown]
  - Drug ineffective [Unknown]
